FAERS Safety Report 12565296 (Version 1)
Quarter: 2016Q3

REPORT INFORMATION
  Report Type: Report from Study
  Country: US (occurrence: US)
  Receive Date: 20160718
  Receipt Date: 20160718
  Transmission Date: 20161109
  Serious: Yes (Life-Threatening)
  Sender: FDA-Public Use
  Company Number: US-ROCHE-1795893

PATIENT
  Age: 58 Year
  Sex: Female
  Weight: 68 kg

DRUGS (2)
  1. ERLOTINIB [Suspect]
     Active Substance: ERLOTINIB
     Indication: INVASIVE BREAST CARCINOMA
     Dosage: LAST DOSE PRIOR TO EVENT: 03/FEB/2012
     Route: 065
     Dates: start: 20120202
  2. VISMODEGIB [Suspect]
     Active Substance: VISMODEGIB
     Indication: INVASIVE BREAST CARCINOMA
     Dosage: LAST DOSE PRIOR TO EVENT: 03/FEB/2012
     Route: 065
     Dates: start: 20120202

REACTIONS (1)
  - Platelet count decreased [Unknown]
